FAERS Safety Report 10955394 (Version 1)
Quarter: 2015Q1

REPORT INFORMATION
  Report Type: Spontaneous
  Country: US (occurrence: None)
  Receive Date: 20150325
  Receipt Date: 20150325
  Transmission Date: 20150721
  Serious: Yes (Death)
  Sender: FDA-Public Use
  Company Number: None

PATIENT
  Age: 62 Year
  Sex: Female

DRUGS (3)
  1. CYCLOPHOSPHAMIDE. [Concomitant]
     Active Substance: CYCLOPHOSPHAMIDE
  2. LOMUSTINE. [Suspect]
     Active Substance: LOMUSTINE
     Indication: LUNG NEOPLASM MALIGNANT
     Dosage: 2C ON DAY 1 Q4WEEKS
     Route: 048
     Dates: start: 20140814, end: 20150116
  3. ETOPOSIDE. [Suspect]
     Active Substance: ETOPOSIDE
     Dosage: 2C QD 1-6 Q4WEEKS
     Route: 048
     Dates: start: 20140814, end: 20150116

REACTIONS (1)
  - Death [None]

NARRATIVE: CASE EVENT DATE: 201502
